FAERS Safety Report 6050506-7 (Version None)
Quarter: 2009Q1

REPORT INFORMATION
  Report Type: 
  Country: None (occurrence: None)
  Receive Date: 20090126
  Receipt Date: 20090116
  Transmission Date: 20090719
  Serious: Yes (Other)
  Sender: FDA-Public Use
  Company Number: PHEH2009US00900

PATIENT
  Sex: Male

DRUGS (19)
  1. ZOMETA [Suspect]
     Indication: MULTIPLE MYELOMA
     Dosage: 4 MG, Q MONTH
     Route: 042
     Dates: start: 20030301, end: 20061001
  2. CHEMOTHERAPEUTICS NOS [Concomitant]
     Dosage: UNK
     Dates: start: 20060401
  3. THALIDOMIDE [Concomitant]
     Dosage: UNK
     Dates: start: 20030401, end: 20060601
  4. ATENOLOL [Concomitant]
     Dosage: 25 MG
     Dates: start: 20000401
  5. LIPITOR [Concomitant]
     Dosage: UNK
     Dates: start: 20060101
  6. PRAVACHOL [Concomitant]
     Dosage: UNK
     Dates: start: 20000101, end: 20060101
  7. MORPHINE [Concomitant]
     Dosage: UNK
     Dates: start: 20070101, end: 20070101
  8. OMEPRAZOLE [Concomitant]
  9. TRIMETHOPRIM [Concomitant]
     Indication: ANTIBIOTIC PROPHYLAXIS
     Dosage: 1 TAB 2 TIMES A DAY SAT, SUN
     Dates: start: 20070622
  10. WARFARIN [Concomitant]
     Indication: ANTICOAGULANT THERAPY
     Dosage: 2 MG, QHS
     Dates: start: 20070608
  11. VITAMINS NOS [Concomitant]
     Dosage: UNK
     Dates: start: 20030101
  12. REVLIMID [Concomitant]
     Indication: MULTIPLE MYELOMA
     Dosage: 25 MG 3 WEEKS OUT OF 4
     Dates: start: 20060701
  13. VITAMIN B6 [Concomitant]
     Indication: NEUROPATHY PERIPHERAL
     Dosage: UNK
     Dates: start: 20060501
  14. OXYCODONE HCL [Concomitant]
     Indication: PAIN
     Dosage: 40 MG, PRN
     Dates: start: 20070101
  15. OXYCODONE HCL [Concomitant]
     Dosage: 5 MG 1-2 CAP Q 2-3 HR PRN
     Dates: start: 20070101
  16. DEXAMETHASONE [Concomitant]
     Indication: MULTIPLE MYELOMA
     Dosage: 4 MG 10 TABS Q SAT
     Dates: start: 20070607
  17. CLINDAMYCIN HCL [Concomitant]
     Dosage: 300 MG, TID
     Dates: start: 20061201
  18. ASPIRIN [Concomitant]
     Indication: ANTICOAGULANT THERAPY
     Dosage: 325 MG
     Dates: start: 20061101
  19. TEGRETOL [Concomitant]
     Indication: NEUROPATHY PERIPHERAL
     Dosage: 200 MG
     Dates: start: 20060201

REACTIONS (11)
  - ARTERIAL DISORDER [None]
  - BLOOD PRESSURE INCREASED [None]
  - BLOODY DISCHARGE [None]
  - BONE DISORDER [None]
  - INFECTION [None]
  - OPEN WOUND [None]
  - OSTEONECROSIS [None]
  - PAIN [None]
  - SWELLING [None]
  - TOOTH EXTRACTION [None]
  - TOOTH LOSS [None]
